FAERS Safety Report 4371597-5 (Version None)
Quarter: 2004Q2

REPORT INFORMATION
  Report Type: 
  Country: None (occurrence: None)
  Receive Date: 20040602
  Receipt Date: 20040521
  Transmission Date: 20050107
  Serious: Yes (Other)
  Sender: FDA-Public Use
  Company Number: US-SHR-04-024909

PATIENT
  Age: 41 Year
  Sex: Female
  Weight: 86.2 kg

DRUGS (12)
  1. BETASERON [Suspect]
     Indication: MULTIPLE SCLEROSIS
     Dosage: 8 MIU, EVERY 2D, SUBCUTANEOUS; 4 MIU, EVERY 2D, SUBCUTANEOUS
     Route: 058
     Dates: start: 20001101, end: 20040505
  2. BETASERON [Suspect]
     Indication: MULTIPLE SCLEROSIS
     Dosage: 8 MIU, EVERY 2D, SUBCUTANEOUS; 4 MIU, EVERY 2D, SUBCUTANEOUS
     Route: 058
     Dates: start: 20040505
  3. BCALOFEN [Concomitant]
  4. ZANTAC [Concomitant]
  5. AMITRIPTYLINE HCL [Concomitant]
  6. FOSAMAX [Concomitant]
  7. PREMARIN   NEZ (ESTROGENS CONUGATED) [Concomitant]
  8. NITROFUR-C (NITROFURANTOIN) [Concomitant]
  9. DITROPAN XL [Concomitant]
  10. PAXIL [Concomitant]
  11. ZIAC [Concomitant]
  12. COMPAZINE (PROCHLORPRERAZINE EDISYLATE) [Concomitant]

REACTIONS (3)
  - DYSPNOEA [None]
  - NAUSEA [None]
  - THROAT TIGHTNESS [None]
